FAERS Safety Report 6542615-0 (Version None)
Quarter: 2010Q1

REPORT INFORMATION
  Report Type: 
  Country: None (occurrence: None)
  Receive Date: 20100114
  Receipt Date: 20091014
  Transmission Date: 20100710
  Serious: Yes (Hospitalization)
  Sender: FDA-Public Use
  Company Number: 2009SP030573

PATIENT
  Age: 78 Year
  Sex: Female
  Weight: 67.1324 kg

DRUGS (9)
  1. TEMOZOLOMIDE [Suspect]
     Indication: METASTATIC MALIGNANT MELANOMA
     Dosage: 240 MG;PO
     Route: 048
     Dates: start: 20090721, end: 20090725
  2. ABT-888 (INVESTIGATIONAL DRUG) [Suspect]
     Indication: METASTATIC MALIGNANT MELANOMA
     Dosage: 40 MG;BID;PO
     Route: 048
     Dates: start: 20090721, end: 20090727
  3. ATORVASTATIN CALCIUM [Concomitant]
  4. WARFARIN SODIUM [Concomitant]
  5. WARFARIN SODIUM [Concomitant]
  6. ACETYLSALICYLIC ACID [Concomitant]
  7. LEVOTHYROXINE SODIUM [Concomitant]
  8. CENTRUM [Concomitant]
  9. CALTRATE [Concomitant]

REACTIONS (1)
  - CHOLECYSTITIS ACUTE [None]
